FAERS Safety Report 10271576 (Version 1)
Quarter: 2014Q3

REPORT INFORMATION
  Report Type: Spontaneous
  Country: IN (occurrence: IN)
  Receive Date: 20140701
  Receipt Date: 20140701
  Transmission Date: 20150326
  Serious: Yes (Death, Other)
  Sender: FDA-Public Use
  Company Number: IN-BAXTER-2014BAX034800

PATIENT
  Age: 9 Year
  Sex: Female
  Weight: 19 kg

DRUGS (13)
  1. CALCIUM GLUCONATE. [Suspect]
     Active Substance: CALCIUM GLUCONATE
     Indication: PRODUCT USED FOR UNKNOWN INDICATION
     Dosage: 2 ML/KG
     Route: 042
  2. GENTAMYCIN [Suspect]
     Active Substance: GENTAMICIN
     Indication: PRODUCT USED FOR UNKNOWN INDICATION
     Route: 042
  3. ZIDOVUDINE + LAMOVUDINE + NEVIRAPINE [Suspect]
     Active Substance: LAMIVUDINE\NEVIRAPINE\ZIDOVUDINE
     Indication: ANTIRETROVIRAL THERAPY
     Route: 065
  4. COTRIMOXAZOLE [Suspect]
     Active Substance: SULFAMETHOXAZOLE\TRIMETHOPRIM
     Indication: PRODUCT USED FOR UNKNOWN INDICATION
     Route: 065
  5. METRONIDAZOLE. [Suspect]
     Active Substance: METRONIDAZOLE
     Indication: PRODUCT USED FOR UNKNOWN INDICATION
     Route: 042
  6. DOPAMINE [Suspect]
     Active Substance: DOPAMINE\DOPAMINE HYDROCHLORIDE
     Indication: PRODUCT USED FOR UNKNOWN INDICATION
     Dosage: 5 MCG/KG/MIN
     Route: 042
  7. CEFTRIAXONE. [Suspect]
     Active Substance: CEFTRIAXONE
     Indication: PRODUCT USED FOR UNKNOWN INDICATION
     Route: 042
  8. ISOLYTE P IN DEXTROSE [Suspect]
     Active Substance: DEXTROSE\MAGNESIUM CHLORIDE\POTASSIUM CHLORIDE\POTASSIUM PHOSPHATE, DIBASIC\SODIUM ACETATE
     Indication: PRODUCT USED FOR UNKNOWN INDICATION
     Route: 042
  9. CEFOTAXIME [Suspect]
     Active Substance: CEFOTAXIME\CEFOTAXIME SODIUM
     Indication: PRODUCT USED FOR UNKNOWN INDICATION
     Route: 042
  10. AMIKACIN [Suspect]
     Active Substance: AMIKACIN
     Indication: PRODUCT USED FOR UNKNOWN INDICATION
     Route: 042
  11. CIPROFLOXACIN. [Suspect]
     Active Substance: CIPROFLOXACIN
     Indication: PRODUCT USED FOR UNKNOWN INDICATION
     Route: 042
  12. STAVUDINE + LAMOVUDINE + NEVIRAPINE [Suspect]
     Active Substance: LAMIVUDINE\NEVIRAPINE\STAVUDINE
     Indication: ANTIRETROVIRAL THERAPY
     Route: 065
  13. LEVOFLOXACIN [Suspect]
     Active Substance: LEVOFLOXACIN
     Indication: PRODUCT USED FOR UNKNOWN INDICATION
     Route: 042

REACTIONS (12)
  - White blood cell count increased [Unknown]
  - Drug ineffective [Unknown]
  - Anaemia [None]
  - Asthenia [None]
  - Tetany [None]
  - Death [Fatal]
  - Paraesthesia [None]
  - Peripheral coldness [None]
  - Oropharyngeal pain [None]
  - Pancreatitis acute [None]
  - Hypoaesthesia [None]
  - Respiratory distress [None]
